FAERS Safety Report 7041580-X (Version None)
Quarter: 2010Q4

REPORT INFORMATION
  Report Type: 
  Country: None (occurrence: None)
  Receive Date: 20101013
  Receipt Date: 20091009
  Transmission Date: 20110411
  Serious: No
  Sender: FDA-Public Use
  Company Number: US-ASTRAZENECA-2009SE13752

PATIENT
  Age: 30457 Day
  Sex: Male
  Weight: 71.7 kg

DRUGS (2)
  1. SYMBICORT [Suspect]
     Dosage: 160/4.5
     Route: 055
     Dates: start: 20090202, end: 20090226
  2. SINGULAIR [Concomitant]

REACTIONS (2)
  - CHEST DISCOMFORT [None]
  - OEDEMA PERIPHERAL [None]
